FAERS Safety Report 12115959 (Version 1)
Quarter: 2016Q1

REPORT INFORMATION
  Report Type: Spontaneous
  Country: US (occurrence: US)
  Receive Date: 20160225
  Receipt Date: 20160225
  Transmission Date: 20160526
  Serious: No
  Sender: FDA-Public Use
  Company Number: US-FRI-1000081798

PATIENT
  Age: 66 Year
  Sex: Female

DRUGS (11)
  1. PROCARDIA [Concomitant]
     Active Substance: NIFEDIPINE
     Dosage: 60MG
  2. SYNTHROID [Concomitant]
     Active Substance: LEVOTHYROXINE SODIUM
  3. LAMICTAL [Concomitant]
     Active Substance: LAMOTRIGINE
     Dosage: 50MG
  4. LAMICTAL [Concomitant]
     Active Substance: LAMOTRIGINE
     Dosage: 100MG
  5. VIIBRYD [Suspect]
     Active Substance: VILAZODONE HYDROCHLORIDE
     Indication: DEPRESSION
     Dosage: 40MG
     Route: 048
     Dates: end: 20151213
  6. VIIBRYD [Suspect]
     Active Substance: VILAZODONE HYDROCHLORIDE
     Indication: MOOD SWINGS
     Dosage: 40MG
     Route: 048
     Dates: start: 20151215
  7. FENTANYL. [Concomitant]
     Active Substance: FENTANYL
     Route: 062
  8. NAMENDA XR [Concomitant]
     Active Substance: MEMANTINE HYDROCHLORIDE
     Dosage: 28MG
  9. SIMVASTATIN. [Concomitant]
     Active Substance: SIMVASTATIN
  10. VALSARTAN. [Concomitant]
     Active Substance: VALSARTAN
     Dosage: 160MG
  11. LYRICA [Concomitant]
     Active Substance: PREGABALIN
     Dosage: 150MG

REACTIONS (3)
  - Drug withdrawal syndrome [Recovered/Resolved]
  - Aggression [Recovered/Resolved]
  - Agitation [Recovered/Resolved]

NARRATIVE: CASE EVENT DATE: 20151213
